FAERS Safety Report 17891121 (Version 3)
Quarter: 2020Q3

REPORT INFORMATION
  Report Type: Spontaneous
  Country: EG (occurrence: EG)
  Receive Date: 20200612
  Receipt Date: 20200814
  Transmission Date: 20201103
  Serious: Yes (Other)
  Sender: FDA-Public Use
  Company Number: EG-JNJFOC-20200527531

PATIENT
  Age: 38 Year
  Sex: Male
  Weight: 70 kg

DRUGS (3)
  1. STELARA [Suspect]
     Active Substance: USTEKINUMAB
  2. STELARA [Suspect]
     Active Substance: USTEKINUMAB
     Indication: CROHN^S DISEASE
     Dosage: ONE YEAR AGO
     Route: 058
     Dates: start: 2019
  3. AZATHIOPRINE. [Concomitant]
     Active Substance: AZATHIOPRINE

REACTIONS (2)
  - Crohn^s disease [Recovering/Resolving]
  - Drug ineffective [Unknown]
